FAERS Safety Report 7883922-9 (Version None)
Quarter: 2011Q4

REPORT INFORMATION
  Report Type: 
  Country: None (occurrence: None)
  Receive Date: 20111102
  Receipt Date: 20111025
  Transmission Date: 20120403
  Serious: No
  Sender: FDA-Public Use
  Company Number: US-JNJFOC-20111011381

PATIENT
  Sex: Female

DRUGS (3)
  1. LITHIUM CITRATE [Concomitant]
     Route: 065
  2. ZYPREXA [Concomitant]
     Route: 065
  3. INVEGA SUSTENNA [Suspect]
     Indication: PRODUCT USED FOR UNKNOWN INDICATION
     Route: 030
     Dates: start: 20110101

REACTIONS (1)
  - EXTRAPYRAMIDAL DISORDER [None]
